FAERS Safety Report 9145506 (Version 1)
Quarter: 2013Q1

REPORT INFORMATION
  Report Type: Report from Study
  Country: CA (occurrence: CA)
  Receive Date: 20130307
  Receipt Date: 20130307
  Transmission Date: 20140127
  Serious: Yes (Other)
  Sender: FDA-Public Use
  Company Number: CA-JNJFOC-20130217023

PATIENT
  Sex: Female
  Weight: 72.58 kg

DRUGS (2)
  1. REMICADE [Suspect]
     Indication: ANKYLOSING SPONDYLITIS
     Route: 042
     Dates: start: 2012
  2. REMICADE [Suspect]
     Indication: ANKYLOSING SPONDYLITIS
     Route: 042

REACTIONS (2)
  - Drug ineffective [Recovering/Resolving]
  - Limb discomfort [Recovering/Resolving]
